FAERS Safety Report 13674384 (Version 1)
Quarter: 2017Q2

REPORT INFORMATION
  Report Type: Spontaneous
  Country: GB (occurrence: GB)
  Receive Date: 20170621
  Receipt Date: 20170621
  Transmission Date: 20170830
  Serious: Yes (Other)
  Sender: FDA-Public Use
  Company Number: GB-009507513-1706GBR007701

PATIENT
  Age: 17 Year
  Sex: Female
  Weight: 86 kg

DRUGS (7)
  1. ERYTHROMYCIN. [Concomitant]
     Active Substance: ERYTHROMYCIN
     Dosage: 1 DF, BID, APPLY
     Dates: start: 20170424
  2. NEXPLANON [Suspect]
     Active Substance: ETONOGESTREL
     Dosage: 1 DF, UNK
     Route: 058
     Dates: start: 20170227, end: 20170502
  3. CERAZETTE [Concomitant]
     Active Substance: DESOGESTREL
     Dosage: 1 DF, QD
     Dates: start: 20170505
  4. ERYTHROMYCIN. [Concomitant]
     Active Substance: ERYTHROMYCIN
     Dosage: 1 DF, QD
     Dates: start: 20170424, end: 20170522
  5. FLOXACILLIN [Concomitant]
     Active Substance: FLUCLOXACILLIN
     Dosage: 1 DF, QD
     Dates: start: 20170505, end: 20170512
  6. ERYTHROMYCIN. [Concomitant]
     Active Substance: ERYTHROMYCIN
     Dosage: 1 DF, QID
     Dates: start: 20170505, end: 20170512
  7. MOMETASONE FUROATE. [Concomitant]
     Active Substance: MOMETASONE FUROATE
     Dosage: 1 DF, QD
     Dates: start: 20170424, end: 20170522

REACTIONS (4)
  - Foreign body reaction [Unknown]
  - Dermatitis allergic [Recovering/Resolving]
  - Implant site erythema [Unknown]
  - Skin disorder [Unknown]

NARRATIVE: CASE EVENT DATE: 201704
